FAERS Safety Report 10130797 (Version 1)
Quarter: 2014Q2

REPORT INFORMATION
  Report Type: Spontaneous
  Country: US (occurrence: None)
  Receive Date: 20140425
  Receipt Date: 20140425
  Transmission Date: 20141212
  Serious: Yes (Life-Threatening, Other)
  Sender: FDA-Public Use
  Company Number: None

PATIENT
  Age: 32 Year
  Sex: Female
  Weight: 81.65 kg

DRUGS (1)
  1. MIRENA [Suspect]

REACTIONS (4)
  - Ruptured ectopic pregnancy [None]
  - Post procedural haemorrhage [None]
  - Infertility female [None]
  - Salpingectomy [None]
